FAERS Safety Report 10661813 (Version 1)
Quarter: 2014Q4

REPORT INFORMATION
  Report Type: Spontaneous
  Country: US (occurrence: None)
  Receive Date: 20141216
  Receipt Date: 20141216
  Transmission Date: 20150529
  Serious: Yes (Life-Threatening, Hospitalization)
  Sender: FDA-Public Use
  Company Number: NSR_01714_2014

PATIENT
  Age: 41 Year
  Sex: Male

DRUGS (1)
  1. BACLOFEN. [Suspect]
     Active Substance: BACLOFEN
     Indication: MUSCLE SPASTICITY
     Dosage: DF ADJUSTED AND TITRATED UNTIL PATIENT EXHIBITED RESOLUTION OF SYMPTOMS , INTRATHECAL
     Route: 037

REACTIONS (10)
  - Urosepsis [None]
  - Mental status changes [None]
  - Tachypnoea [None]
  - Hyperreflexia [None]
  - Muscle spasms [None]
  - Agitation [None]
  - Drug withdrawal syndrome [None]
  - Unresponsive to stimuli [None]
  - Hypertension [None]
  - Tachycardia [None]
